FAERS Safety Report 7995208-2 (Version None)
Quarter: 2011Q4

REPORT INFORMATION
  Report Type: 
  Country: None (occurrence: None)
  Receive Date: 20111220
  Receipt Date: 20111219
  Transmission Date: 20120403
  Serious: Yes (Hospitalization, Other)
  Sender: FDA-Public Use
  Company Number: US-AMGEN-USASP2011023898

PATIENT
  Age: 45 Year
  Sex: Female
  Weight: 56 kg

DRUGS (18)
  1. MULTIVITAMIN                       /00097801/ [Concomitant]
  2. AMOXICILLIN [Concomitant]
  3. IMMUNE GLOBULIN NOS [Concomitant]
  4. LISINOPRIL [Concomitant]
  5. PRAZOLE [Concomitant]
  6. CARVEDILOL [Concomitant]
  7. SODIUM CHLORIDE [Concomitant]
  8. ATORVASTATIN [Concomitant]
  9. AZATHIOPRINE [Concomitant]
  10. POTASSIUM CHLORIDE [Concomitant]
  11. PLATELETS [Concomitant]
  12. OXYCODONE HCL [Concomitant]
  13. PHOSPHORUS [Concomitant]
  14. PREDNISONE TAB [Concomitant]
  15. MAGNESIUM [Concomitant]
  16. INSULIN [Concomitant]
  17. NPLATE [Suspect]
     Indication: IDIOPATHIC THROMBOCYTOPENIC PURPURA
     Dosage: UNK
  18. NEXIUM [Concomitant]
     Dosage: UNK

REACTIONS (11)
  - CEREBROVASCULAR ACCIDENT [None]
  - PULMONARY EMBOLISM [None]
  - BLOOD MAGNESIUM DECREASED [None]
  - CONTUSION [None]
  - DEEP VEIN THROMBOSIS [None]
  - PYREXIA [None]
  - MENTAL STATUS CHANGES [None]
  - TOOTH INFECTION [None]
  - HYPOTENSION [None]
  - BLOOD POTASSIUM DECREASED [None]
  - ACUTE MYOCARDIAL INFARCTION [None]
